FAERS Safety Report 15599908 (Version 5)
Quarter: 2019Q1

REPORT INFORMATION
  Report Type: Report from Study
  Country: None (occurrence: RO)
  Receive Date: 20181108
  Receipt Date: 20190307
  Transmission Date: 20190417
  Serious: Yes (Hospitalization, Other)
  Sender: FDA-Public Use
  Company Number: RO-ABBVIE-18K-135-2543109-00

PATIENT
  Age: 65 Year
  Sex: Male
  Weight: 74 kg

DRUGS (6)
  1. HUMIRA [Suspect]
     Active Substance: ADALIMUMAB
     Route: 058
     Dates: start: 2018, end: 20181016
  2. OMNIC TOCAS [Concomitant]
     Active Substance: TAMSULOSIN HYDROCHLORIDE
     Indication: PRODUCT USED FOR UNKNOWN INDICATION
  3. HUMIRA [Suspect]
     Active Substance: ADALIMUMAB
     Route: 058
  4. HUMIRA [Suspect]
     Active Substance: ADALIMUMAB
     Route: 058
     Dates: end: 2018
  5. IODUM [Suspect]
     Active Substance: IODINE
     Indication: THYROID MASS
     Route: 065
  6. HUMIRA [Suspect]
     Active Substance: ADALIMUMAB
     Indication: ANKYLOSING SPONDYLITIS
     Route: 058
     Dates: start: 20131015, end: 2016

REACTIONS (14)
  - Hyperhidrosis [Recovered/Resolved]
  - Thyroid cancer [Not Recovered/Not Resolved]
  - Spinal pain [Not Recovered/Not Resolved]
  - Fatigue [Not Recovered/Not Resolved]
  - Arthralgia [Not Recovered/Not Resolved]
  - Nausea [Recovered/Resolved]
  - Malignant neoplasm progression [None]
  - Haemorrhoids [Recovered/Resolved]
  - Thyroid cancer [Recovered/Resolved]
  - Headache [Recovered/Resolved]
  - Pollakiuria [Not Recovered/Not Resolved]
  - Coagulopathy [Unknown]
  - Anal fissure [Recovered/Resolved]
  - Vomiting [Recovered/Resolved]

NARRATIVE: CASE EVENT DATE: 20150908
